FAERS Safety Report 25908183 (Version 1)
Quarter: 2025Q4

REPORT INFORMATION
  Report Type: Report from Study
  Country: GB (occurrence: GB)
  Receive Date: 20251010
  Receipt Date: 20251010
  Transmission Date: 20260117
  Serious: Yes (Other)
  Sender: ABBVIE
  Company Number: GB-ABBVIE-6494060

PATIENT
  Sex: Female

DRUGS (1)
  1. RINVOQ [Suspect]
     Active Substance: UPADACITINIB
     Indication: Ankylosing spondylitis
     Dosage: MODIFIED-RELEASE TABLETS (ABBVIE LTD) 28 TABLET 4 X 7 TABLETS
     Route: 048

REACTIONS (2)
  - Intestinal perforation [Unknown]
  - Gastrointestinal infection [Unknown]
